FAERS Safety Report 9384150 (Version 1)
Quarter: 2013Q3

REPORT INFORMATION
  Report Type: Spontaneous
  Country: US (occurrence: None)
  Receive Date: 20130702
  Receipt Date: 20130702
  Transmission Date: 20140515
  Serious: Yes (Disabling)
  Sender: FDA-Public Use
  Company Number: None

PATIENT
  Sex: Male
  Weight: 122.47 kg

DRUGS (1)
  1. ABILIFY [Suspect]
     Indication: MANIA
     Dates: start: 2004

REACTIONS (1)
  - Unevaluable event [None]
